FAERS Safety Report 14227955 (Version 6)
Quarter: 2018Q4

REPORT INFORMATION
  Report Type: Spontaneous
  Country: CO (occurrence: CO)
  Receive Date: 20171127
  Receipt Date: 20181008
  Transmission Date: 20190204
  Serious: Yes (Life-Threatening)
  Sender: FDA-Public Use
  Company Number: CO-PFIZER INC-2017503703

PATIENT
  Age: 25 Year
  Sex: Male

DRUGS (19)
  1. ETOPOSIDE. [Concomitant]
     Active Substance: ETOPOSIDE
     Indication: NON-HODGKIN^S LYMPHOMA STAGE IV
     Dosage: 162 MG, CYCLIC (ON DAYS 1 TO 3)
     Route: 042
  2. PREDNISONE. [Concomitant]
     Active Substance: PREDNISONE
     Indication: SKIN LESION
  3. DEXAMETHASONE. [Concomitant]
     Active Substance: DEXAMETHASONE
     Indication: T-CELL LYMPHOMA STAGE IV
     Dosage: 8 MG, UNK, (PRE-CHEMOTHERAPY)
     Route: 042
  4. PEGFILGRASTIM [Concomitant]
     Active Substance: PEGFILGRASTIM
     Indication: SKIN LESION
  5. ONDANSETRON [Concomitant]
     Active Substance: ONDANSETRON
     Indication: SKIN LESION
  6. DEXAMETHASONE. [Concomitant]
     Active Substance: DEXAMETHASONE
     Indication: NON-HODGKIN^S LYMPHOMA STAGE IV
  7. ESOMEPRAZOLE. [Concomitant]
     Active Substance: ESOMEPRAZOLE MAGNESIUM
     Indication: T-CELL LYMPHOMA STAGE IV
     Dosage: 20 MG, DAILY
     Route: 048
  8. DOXORUBICIN HCL [Suspect]
     Active Substance: DOXORUBICIN HYDROCHLORIDE
     Indication: NON-HODGKIN^S LYMPHOMA STAGE IV
     Dosage: 81 MG, CYCLIC
     Route: 042
  9. CYCLOPHOSPHAMIDE. [Concomitant]
     Active Substance: CYCLOPHOSPHAMIDE
     Indication: NON-HODGKIN^S LYMPHOMA STAGE IV
     Dosage: 1120 MG, CYCLIC (ON DAY 1)
     Route: 042
  10. ONDANSETRON [Concomitant]
     Active Substance: ONDANSETRON
     Indication: T-CELL LYMPHOMA STAGE IV
     Dosage: 16 MG, UNK, (PRE-CHEMOTHERAPY)
     Route: 042
  11. DEXAMETHASONE. [Concomitant]
     Active Substance: DEXAMETHASONE
     Indication: SKIN LESION
  12. ESOMEPRAZOLE. [Concomitant]
     Active Substance: ESOMEPRAZOLE MAGNESIUM
     Indication: NON-HODGKIN^S LYMPHOMA STAGE IV
  13. PREDNISONE. [Concomitant]
     Active Substance: PREDNISONE
     Indication: T-CELL LYMPHOMA STAGE IV
     Dosage: 50 MG, 2X/DAY (FROM DAYS 1 TO 5)
     Route: 048
  14. PEGFILGRASTIM [Concomitant]
     Active Substance: PEGFILGRASTIM
     Indication: NON-HODGKIN^S LYMPHOMA STAGE IV
  15. ESOMEPRAZOLE. [Concomitant]
     Active Substance: ESOMEPRAZOLE MAGNESIUM
     Indication: SKIN LESION
  16. VINCRISTINE [Concomitant]
     Active Substance: VINCRISTINE
     Indication: NON-HODGKIN^S LYMPHOMA STAGE IV
     Dosage: 2 MG, CYCLIC
  17. ONDANSETRON [Concomitant]
     Active Substance: ONDANSETRON
     Indication: NON-HODGKIN^S LYMPHOMA STAGE IV
     Dosage: 8 MG, 3X/DAY (EVERY 8 HOURS FOR 5 DAYS)
     Route: 048
  18. PREDNISONE. [Concomitant]
     Active Substance: PREDNISONE
     Indication: NON-HODGKIN^S LYMPHOMA STAGE IV
  19. PEGFILGRASTIM [Concomitant]
     Active Substance: PEGFILGRASTIM
     Indication: T-CELL LYMPHOMA STAGE IV
     Dosage: 6 MG, UNK, ON DAY 4
     Route: 058

REACTIONS (1)
  - Ventricular fibrillation [Recovered/Resolved]
